FAERS Safety Report 5200174-9 (Version None)
Quarter: 2007Q1

REPORT INFORMATION
  Report Type: 
  Country: None (occurrence: None)
  Receive Date: 20070103
  Receipt Date: 20061220
  Transmission Date: 20070707
  Serious: Yes (Other)
  Sender: FDA-Public Use
  Company Number: 2006US002969

PATIENT
  Age: 75 Year
  Sex: Female

DRUGS (1)
  1. ADENOSCAN [Suspect]
     Indication: SCAN MYOCARDIAL PERFUSION

REACTIONS (2)
  - CHEST PAIN [None]
  - ELECTROCARDIOGRAM ST-T SEGMENT ELEVATION [None]
